FAERS Safety Report 8066753-9 (Version None)
Quarter: 2012Q1

REPORT INFORMATION
  Report Type: 
  Country: None (occurrence: None)
  Receive Date: 20120117
  Receipt Date: 20120107
  Transmission Date: 20120608
  Serious: Yes (Hospitalization)
  Sender: FDA-Public Use
  Company Number: 2012AP000048

PATIENT
  Age: 54 Year
  Sex: Female

DRUGS (1)
  1. LATANOPROST [Suspect]
     Indication: OPEN ANGLE GLAUCOMA
     Dosage: EYE_DROP; OPH;
     Route: 047

REACTIONS (7)
  - ATRIOVENTRICULAR BLOCK SECOND DEGREE [None]
  - DYSPNOEA [None]
  - MITRAL VALVE INCOMPETENCE [None]
  - PALPITATIONS [None]
  - DIZZINESS [None]
  - FATIGUE [None]
  - LETHARGY [None]
